FAERS Safety Report 8954350 (Version 1)
Quarter: 2012Q4

REPORT INFORMATION
  Report Type: 
  Country: US (occurrence: US)
  Receive Date: 20121210
  Receipt Date: 20121210
  Transmission Date: 20130627
  Serious: Yes (Hospitalization, Disabling)
  Sender: FDA-Public Use
  Company Number: US-AMGEN-USASP2012078223

PATIENT
  Age: 67 Year
  Sex: Female

DRUGS (2)
  1. PROCRIT [Suspect]
     Indication: FULL BLOOD COUNT DECREASED
     Dosage: 20000 IU, 3 times/wk
     Route: 058
     Dates: start: 20100923
  2. REVLIMID [Suspect]
     Indication: MULTIPLE MYELOMA
     Dosage: 25 mg, 2 times/wk on Monday and Thursday
     Route: 048
     Dates: start: 20100604

REACTIONS (7)
  - Dehydration [Unknown]
  - Pneumonia [Unknown]
  - Full blood count decreased [Unknown]
  - Renal impairment [Unknown]
  - Asthenia [Unknown]
  - Swelling [Unknown]
  - Oedema peripheral [Unknown]
